FAERS Safety Report 7297419-0 (Version None)
Quarter: 2011Q1

REPORT INFORMATION
  Report Type: 
  Country: None (occurrence: None)
  Receive Date: 20110216
  Receipt Date: 20110209
  Transmission Date: 20110831
  Serious: Yes (Hospitalization)
  Sender: FDA-Public Use
  Company Number: GB-PFIZER INC-2011029959

PATIENT
  Age: 82 Year
  Sex: Female

DRUGS (9)
  1. SALBUTAMOL [Concomitant]
     Dosage: 5 MG, 4X/DAY
  2. CLOPIDOGREL [Concomitant]
     Dosage: 75 MG, 1X/DAY
  3. CIPROFLOXACIN HCL [Suspect]
     Indication: INFECTIVE EXACERBATION OF CHRONIC OBSTRUCTIVE AIRWAYS DISEASE
     Dosage: 500 MG, UNK
     Route: 048
     Dates: start: 20110114
  4. CARBOCISTEINE [Concomitant]
     Dosage: 750 MG, 3X/DAY
  5. IPRATROPIUM [Concomitant]
     Dosage: 500 UG, 4X/DAY
  6. PREDNISOLONE [Suspect]
     Indication: INFECTIVE EXACERBATION OF CHRONIC OBSTRUCTIVE AIRWAYS DISEASE
     Dosage: UNK
     Route: 048
     Dates: start: 20110114
  7. DOXYCYCLINE [Concomitant]
  8. SERETIDE [Concomitant]
     Dosage: 500 IU, 2X/DAY
  9. THEOPHYLLINE [Concomitant]
     Dosage: 200 MG, 2X/DAY

REACTIONS (1)
  - TENDON RUPTURE [None]
